FAERS Safety Report 14747620 (Version 9)
Quarter: 2018Q2

REPORT INFORMATION
  Report Type: Spontaneous
  Country: US (occurrence: US)
  Receive Date: 20180411
  Receipt Date: 20180530
  Transmission Date: 20180711
  Serious: Yes (Hospitalization)
  Sender: FDA-Public Use
  Company Number: US-ACTELION-A-US2018-170492

PATIENT
  Age: 73 Year
  Sex: Female
  Weight: 46.26 kg

DRUGS (4)
  1. ADEMPAS [Concomitant]
     Active Substance: RIOCIGUAT
  2. VELETRI [Suspect]
     Active Substance: EPOPROSTENOL
     Indication: PULMONARY ARTERIAL HYPERTENSION
     Dosage: 38 NG/KG, PER MIN
     Route: 042
  3. FLOLAN [Concomitant]
     Active Substance: EPOPROSTENOL SODIUM
  4. OPSUMIT [Suspect]
     Active Substance: MACITENTAN
     Indication: PULMONARY ARTERIAL HYPERTENSION
     Dosage: 10 MG, QD
     Route: 048

REACTIONS (7)
  - Pulmonary haemorrhage [Unknown]
  - Hypotension [Unknown]
  - Pulmonary hypertension [Unknown]
  - Haematemesis [Unknown]
  - Pulmonary thrombosis [Unknown]
  - Haemoptysis [Unknown]
  - Dizziness postural [Unknown]
